FAERS Safety Report 7655889-X (Version None)
Quarter: 2011Q3

REPORT INFORMATION
  Report Type: 
  Country: None (occurrence: None)
  Receive Date: 20110804
  Receipt Date: 20110804
  Transmission Date: 20111222
  Serious: No
  Sender: FDA-Public Use
  Company Number: None

PATIENT
  Age: 56 Year
  Sex: Male
  Weight: 74.842 kg

DRUGS (1)
  1. ZOLPIDEM TARTRATE [Suspect]
     Indication: INSOMNIA
     Dosage: 1
     Route: 048
     Dates: start: 20110725, end: 20110802

REACTIONS (4)
  - DRUG INEFFECTIVE [None]
  - PRODUCT DISTRIBUTION ISSUE [None]
  - PRODUCT SUBSTITUTION ISSUE [None]
  - HEADACHE [None]
